FAERS Safety Report 20143049 (Version 1)
Quarter: 2021Q4

REPORT INFORMATION
  Report Type: Spontaneous
  Country: JP (occurrence: JP)
  Receive Date: 20211202
  Receipt Date: 20211202
  Transmission Date: 20220303
  Serious: Yes (Hospitalization)
  Sender: FDA-Public Use
  Company Number: JP-IPCA LABORATORIES LIMITED-IPC-2021-JP-001965

PATIENT

DRUGS (21)
  1. WARFARIN [Interacting]
     Active Substance: WARFARIN
     Indication: Thrombosis prophylaxis
     Dosage: 2 MILLIGRAM, QD
     Route: 065
  2. WARFARIN [Interacting]
     Active Substance: WARFARIN
     Dosage: 3 MILLIGRAM, QD
     Route: 065
  3. WARFARIN [Interacting]
     Active Substance: WARFARIN
     Dosage: 4 MILLIGRAM, QD
     Route: 065
  4. WARFARIN [Interacting]
     Active Substance: WARFARIN
     Dosage: 5 MILLIGRAM, QD
     Route: 065
  5. WARFARIN [Interacting]
     Active Substance: WARFARIN
     Dosage: 2 MILLIGRAM, QD
     Route: 065
  6. WARFARIN [Interacting]
     Active Substance: WARFARIN
     Dosage: 2.5 MILLIGRAM, QD
     Route: 065
  7. WARFARIN [Interacting]
     Active Substance: WARFARIN
     Dosage: 3.5 MILLIGRAM, QD
     Route: 065
  8. WARFARIN [Interacting]
     Active Substance: WARFARIN
     Dosage: 1 MILLIGRAM, QD
     Route: 065
  9. WARFARIN [Interacting]
     Active Substance: WARFARIN
     Dosage: 2.5 MILLIGRAM, QD
     Route: 065
  10. GLIMEPIRIDE [Interacting]
     Active Substance: GLIMEPIRIDE
     Indication: Product used for unknown indication
     Dosage: 2 MILLIGRAM, BID (AFTER BREAKFAST AND DINNER)
     Route: 065
  11. GLIMEPIRIDE [Interacting]
     Active Substance: GLIMEPIRIDE
     Dosage: 2 MILLIGRAM PER DAY
     Route: 065
  12. BUCOLOME [Interacting]
     Active Substance: BUCOLOME
     Indication: Product used for unknown indication
     Dosage: 300 MILLIGRAM, QD
     Route: 065
  13. FUROSEMIDE [Concomitant]
     Active Substance: FUROSEMIDE
     Indication: Product used for unknown indication
     Dosage: 20 MILLIGRAM, QD
     Route: 065
  14. AMLODIPINE [Concomitant]
     Active Substance: AMLODIPINE BESYLATE
     Indication: Product used for unknown indication
     Dosage: 5 MILLIGRAM, QD (AFTER BREAKFAST)
     Route: 065
  15. TELMISARTAN [Concomitant]
     Active Substance: TELMISARTAN
     Indication: Product used for unknown indication
     Dosage: 40 MILLIGRAM, QD (AFTER BREAKFAST)
     Route: 065
  16. VOGLIBOSE [Concomitant]
     Active Substance: VOGLIBOSE
     Indication: Product used for unknown indication
     Dosage: 0.6 MILLIGRAM, QD (JUST BEFORE MEALS THREE TIMES A DAY)
     Route: 065
  17. INSULIN NOS [Concomitant]
     Active Substance: INSULIN NOS
     Indication: Product used for unknown indication
     Dosage: UNK
     Route: 065
  18. CARBOCYSTEINE [Concomitant]
     Active Substance: CARBOCYSTEINE
     Indication: Product used for unknown indication
     Dosage: 1500 MILLIGRAM, QD
     Route: 065
  19. MAGNESIUM OXIDE [Concomitant]
     Active Substance: MAGNESIUM OXIDE
     Indication: Product used for unknown indication
     Dosage: 990 MILLIGRAM, QD
     Route: 065
  20. SODIUM FERROUS CITRATE [Concomitant]
     Active Substance: SODIUM FERROUS CITRATE
     Indication: Product used for unknown indication
     Dosage: 100 MILLIGRAM, QD
     Route: 065
  21. HEPARIN SODIUM [Concomitant]
     Active Substance: HEPARIN SODIUM
     Indication: Product used for unknown indication
     Dosage: 14400 UNIT, QD
     Route: 065

REACTIONS (2)
  - Hypoglycaemia [Unknown]
  - Drug interaction [Unknown]
